FAERS Safety Report 17825483 (Version 1)
Quarter: 2020Q2

REPORT INFORMATION
  Report Type: Spontaneous
  Country: CA (occurrence: CA)
  Receive Date: 20200526
  Receipt Date: 20200526
  Transmission Date: 20200714
  Serious: Yes (Other)
  Sender: FDA-Public Use
  Company Number: CA-TEVA-2020-CA-1238655

PATIENT
  Age: 13 Year
  Sex: Male
  Weight: 61 kg

DRUGS (10)
  1. PROCYTOX [Suspect]
     Active Substance: CYCLOPHOSPHAMIDE
     Indication: NEOPLASM MALIGNANT
     Route: 042
  2. CYCLOPHOSPHAMIDE. [Suspect]
     Active Substance: CYCLOPHOSPHAMIDE
     Indication: NEOPLASM MALIGNANT
     Route: 042
  3. DOXORUBICIN HYDROCHLORIDE INJECTION [Suspect]
     Active Substance: DOXORUBICIN HYDROCHLORIDE
  4. ETOPOSIDE. [Suspect]
     Active Substance: ETOPOSIDE
     Route: 065
  5. CISPLATIN. [Concomitant]
     Active Substance: CISPLATIN
  6. TOPOTECAN [Concomitant]
     Active Substance: TOPOTECAN HYDROCHLORIDE
  7. VINCRISTINE SULFATE. [Concomitant]
     Active Substance: VINCRISTINE SULFATE
  8. IFEX [Suspect]
     Active Substance: IFOSFAMIDE
  9. IFOSFAMIDE FOR INJECTION, USP [Suspect]
     Active Substance: IFOSFAMIDE
  10. CARBOPLATIN. [Concomitant]
     Active Substance: CARBOPLATIN

REACTIONS (1)
  - Cardiotoxicity [Unknown]
